FAERS Safety Report 23447696 (Version 1)
Quarter: 2024Q1

REPORT INFORMATION
  Report Type: Spontaneous
  Country: US (occurrence: None)
  Receive Date: 20240126
  Receipt Date: 20240126
  Transmission Date: 20240409
  Serious: Yes (Hospitalization)
  Sender: FDA-Public Use
  Company Number: None

PATIENT
  Age: 70 Year
  Sex: Male
  Weight: 66 kg

DRUGS (1)
  1. CARVYKTI [Suspect]
     Active Substance: CILTACABTAGENE AUTOLEUCEL
     Indication: Plasma cell myeloma in remission
     Dosage: OTHER FREQUENCY : ONCE;?
     Route: 042
     Dates: start: 20231211, end: 20231211

REACTIONS (2)
  - Facial paresis [None]
  - Visual impairment [None]

NARRATIVE: CASE EVENT DATE: 20240115
